FAERS Safety Report 12316994 (Version 1)
Quarter: 2016Q2

REPORT INFORMATION
  Report Type: Spontaneous
  Country: None (occurrence: None)
  Receive Date: 20160428
  Receipt Date: 20160428
  Transmission Date: 20160815
  Serious: No
  Sender: FDA-Public Use
  Company Number: None

PATIENT
  Age: 62 Year
  Sex: Female

DRUGS (3)
  1. METFORMIN [Suspect]
     Active Substance: METFORMIN HYDROCHLORIDE
  2. LIPITOR [Suspect]
     Active Substance: ATORVASTATIN CALCIUM
  3. LIPOZENE [Suspect]
     Active Substance: KONJAC MANNAN

REACTIONS (1)
  - Diabetes mellitus inadequate control [None]
